FAERS Safety Report 11228257 (Version 1)
Quarter: 2015Q2

REPORT INFORMATION
  Report Type: Spontaneous
  Country: AU (occurrence: None)
  Receive Date: 20150626
  Receipt Date: 20150626
  Transmission Date: 20150821
  Serious: Yes (Hospitalization)
  Sender: FDA-Public Use
  Company Number: IPC201506-000398

PATIENT
  Age: 86 Year
  Sex: Female

DRUGS (3)
  1. CEFACLOR. [Suspect]
     Active Substance: CEFACLOR
     Indication: CELLULITIS
     Route: 048
  2. WARFARIN (WARFARIN) (WARFARIN) [Suspect]
     Active Substance: WARFARIN
     Indication: PULMONARY EMBOLISM
  3. CEFTRIAXONE (CEFTRIAXONE) (CEFTRIAXONE) [Suspect]
     Active Substance: CEFTRIAXONE
     Indication: CELLULITIS
     Route: 042

REACTIONS (8)
  - International normalised ratio increased [None]
  - Corneal oedema [None]
  - Retching [None]
  - Blood potassium increased [None]
  - Iris haemorrhage [None]
  - Hyphaema [None]
  - Intraocular pressure increased [None]
  - Drug interaction [None]
